FAERS Safety Report 23155611 (Version 1)
Quarter: 2023Q4

REPORT INFORMATION
  Report Type: Spontaneous
  Country: AR (occurrence: AR)
  Receive Date: 20231107
  Receipt Date: 20231107
  Transmission Date: 20240110
  Serious: Yes (Other)
  Sender: FDA-Public Use
  Company Number: AR-002147023-NVSC2023AR232914

PATIENT
  Age: 5 Year
  Sex: Male

DRUGS (12)
  1. METHOTREXATE [Suspect]
     Active Substance: METHOTREXATE
     Indication: Prophylaxis against graft versus host disease
     Dosage: 10 MG/M2 (ON DAYS PLUS 1, 3, 6 AND 11)
     Route: 065
  2. METHOTREXATE [Suspect]
     Active Substance: METHOTREXATE
     Indication: Allogenic stem cell transplantation
  3. TACROLIMUS [Suspect]
     Active Substance: TACROLIMUS
     Indication: Prophylaxis against graft versus host disease
     Dosage: 0.03 MG/KG (INITIAL DOSE)
     Route: 065
  4. TACROLIMUS [Suspect]
     Active Substance: TACROLIMUS
     Indication: Allogenic stem cell transplantation
  5. AMPHOTERICIN B [Concomitant]
     Active Substance: AMPHOTERICIN B
     Indication: Antifungal prophylaxis
     Dosage: 5 MG/KG
     Route: 065
  6. ANIDULAFUNGIN [Concomitant]
     Active Substance: ANIDULAFUNGIN
     Indication: Antifungal prophylaxis
     Dosage: 1.5 MG/KG, QD
     Route: 065
  7. METHOXSALEN [Interacting]
     Active Substance: METHOXSALEN
     Indication: Graft versus host disease
     Dosage: UNK
     Route: 065
  8. VORICONAZOLE [Interacting]
     Active Substance: VORICONAZOLE
     Dosage: 100 MG, BID
     Route: 065
  9. VORICONAZOLE [Interacting]
     Active Substance: VORICONAZOLE
     Dosage: 100 MG, BID (RESTARTED ON DAY PLUS 28)
     Route: 065
  10. VORICONAZOLE [Interacting]
     Active Substance: VORICONAZOLE
     Dosage: 100 MG, BID (RESTARTED ON DAY PLUS 49)
     Route: 065
  11. VORICONAZOLE [Interacting]
     Active Substance: VORICONAZOLE
     Dosage: 150 MG, BID
     Route: 065
  12. VORICONAZOLE [Interacting]
     Active Substance: VORICONAZOLE
     Indication: Antifungal prophylaxis
     Dosage: 200 MG, BID (ON DAY PLUS 1 POST TRANSPLANT)
     Route: 065

REACTIONS (5)
  - Febrile neutropenia [Recovered/Resolved]
  - Acute graft versus host disease in skin [Unknown]
  - Drug interaction [Unknown]
  - Drug level increased [Unknown]
  - Product use in unapproved indication [Unknown]
